FAERS Safety Report 8893110 (Version 1)
Quarter: 2012Q4

REPORT INFORMATION
  Report Type: Spontaneous
  Country: US (occurrence: None)
  Receive Date: 20121106
  Receipt Date: 20121106
  Transmission Date: 20130627
  Serious: Yes (Other)
  Sender: FDA-Public Use
  Company Number: None

PATIENT
  Age: 27 Year
  Sex: Female
  Weight: 58.51 kg

DRUGS (1)
  1. AVELOX [Suspect]
     Route: 048
     Dates: start: 20120517, end: 20120524

REACTIONS (2)
  - Arthralgia [None]
  - Tendonitis [None]
